FAERS Safety Report 23295408 (Version 2)
Quarter: 2024Q1

REPORT INFORMATION
  Report Type: Spontaneous
  Country: JP (occurrence: JP)
  Receive Date: 20231214
  Receipt Date: 20240117
  Transmission Date: 20240410
  Serious: Yes (Hospitalization)
  Sender: FDA-Public Use
  Company Number: JP-ABBVIE-5510050

PATIENT
  Age: 12 Year
  Sex: Male
  Weight: 53 kg

DRUGS (4)
  1. RINVOQ [Suspect]
     Active Substance: UPADACITINIB
     Indication: Dermatitis atopic
     Dosage: FORM STRENGTH: 15 MILLIGRAM
     Route: 048
     Dates: start: 20230825, end: 20231116
  2. HEPARINOID [Concomitant]
     Indication: Dermatitis atopic
     Dosage: 4 GRAM
  3. UREA [Concomitant]
     Active Substance: UREA
     Indication: Dermatitis atopic
     Dosage: FORM STRENGTH UNITS: 10 PERCENT?2 GRAM
  4. TACROLIMUS [Concomitant]
     Active Substance: TACROLIMUS
     Indication: Dermatitis atopic
     Dosage: FORM STRENGTH: 0.03 PERCENT

REACTIONS (3)
  - Cellulitis [Recovered/Resolved]
  - Bacterial infection [Recovered/Resolved]
  - Pneumonia mycoplasmal [Unknown]

NARRATIVE: CASE EVENT DATE: 20230101
